FAERS Safety Report 11926172 (Version 1)
Quarter: 2016Q1

REPORT INFORMATION
  Report Type: Spontaneous
  Country: GB (occurrence: GB)
  Receive Date: 20160119
  Receipt Date: 20160119
  Transmission Date: 20160526
  Serious: Yes (Other)
  Sender: FDA-Public Use
  Company Number: GB-AUROBINDO-AUR-APL-2016-00235

PATIENT
  Age: 67 Year
  Sex: Male

DRUGS (6)
  1. OMEPRAZOLE. [Suspect]
     Active Substance: OMEPRAZOLE
     Indication: PRODUCT USED FOR UNKNOWN INDICATION
     Dosage: UNK
     Route: 065
  2. ANQUIL                             /00088701/ [Suspect]
     Active Substance: BENPERIDOL
     Dosage: UNK
     Route: 048
  3. SODIUM VALPROATE [Concomitant]
     Active Substance: VALPROATE SODIUM
     Indication: PRODUCT USED FOR UNKNOWN INDICATION
     Route: 065
  4. ANQUIL                             /00088701/ [Suspect]
     Active Substance: BENPERIDOL
     Dosage: 3 DF, BID (1 TABLET AT 1PM AND 2 TABLETS AT 10PM)UNK
     Route: 048
  5. ANQUIL /00088701/ [Suspect]
     Active Substance: BENPERIDOL
     Indication: SEXUALLY INAPPROPRIATE BEHAVIOUR
     Dosage: 3 DF, BID (1 TABLET AT 1PM AND 2 TABLETS AT 10PM)
     Route: 048
     Dates: start: 1990
  6. LOPERAMIDE [Concomitant]
     Active Substance: LOPERAMIDE
     Indication: PRODUCT USED FOR UNKNOWN INDICATION
     Dosage: UNK
     Route: 065

REACTIONS (5)
  - Dyspepsia [Not Recovered/Not Resolved]
  - Throat cancer [Not Recovered/Not Resolved]
  - Condition aggravated [Unknown]
  - Dysphagia [Unknown]
  - Sexually inappropriate behaviour [None]
